FAERS Safety Report 9415112 (Version 1)
Quarter: 2013Q3

REPORT INFORMATION
  Report Type: Spontaneous
  Country: US (occurrence: US)
  Receive Date: 20130723
  Receipt Date: 20130723
  Transmission Date: 20140515
  Serious: Yes (Other)
  Sender: FDA-Public Use
  Company Number: PHHY2013US078206

PATIENT
  Sex: Female

DRUGS (4)
  1. BACLOFEN INTRATHECAL [Suspect]
     Indication: MUSCLE SPASTICITY
     Dosage: 100 UG, DAY
     Route: 037
  2. BACLOFEN [Suspect]
     Indication: MUSCLE SPASTICITY
     Dosage: 40 MG, TID
     Route: 048
  3. TIZANIDINE [Suspect]
     Dosage: 8 MG, TID
  4. DANTRIUM [Suspect]
     Dosage: 50 MG, TID

REACTIONS (5)
  - Injury [Unknown]
  - Hypokinesia [Unknown]
  - Hypertension [Unknown]
  - Muscle spasms [Unknown]
  - Drug withdrawal syndrome [Unknown]
